FAERS Safety Report 12856754 (Version 5)
Quarter: 2017Q4

REPORT INFORMATION
  Report Type: Spontaneous
  Country: US (occurrence: US)
  Receive Date: 20161018
  Receipt Date: 20171016
  Transmission Date: 20180320
  Serious: Yes (Other)
  Sender: FDA-Public Use
  Company Number: US-PFIZER INC-2016482929

PATIENT
  Age: 63 Year
  Sex: Female

DRUGS (5)
  1. LETROZOLE. [Suspect]
     Active Substance: LETROZOLE
     Indication: BREAST CANCER METASTATIC
     Dosage: 2.5 MG, DAILY
     Route: 048
     Dates: start: 20160907
  2. IBRANCE [Suspect]
     Active Substance: PALBOCICLIB
     Indication: BREAST CANCER METASTATIC
     Dosage: 100 MG, CYCLIC (EVERY DAY FOR DAYS 1-21 AND 7 DAYS OFF)
     Route: 048
     Dates: start: 20160907
  3. IBRANCE [Suspect]
     Active Substance: PALBOCICLIB
     Dosage: 100 MG, CYCLIC (EVERY DAY FOR DAYS 1-21 AND 7 DAYS OFF)
     Route: 048
     Dates: start: 201610
  4. IBRANCE [Suspect]
     Active Substance: PALBOCICLIB
     Dosage: 75 MG, CYCLIC (ONE CAPSULE DAILY FOR DAYS 1-21 AND 1 WEEK OFF)
     Route: 048
     Dates: start: 201610
  5. LETROZOLE. [Suspect]
     Active Substance: LETROZOLE
     Dosage: 2.5 MG, DAILY
     Route: 048
     Dates: start: 201610

REACTIONS (10)
  - Anxiety [Unknown]
  - Cold sweat [Unknown]
  - Cough [Unknown]
  - Dyspnoea [Unknown]
  - Stomatitis [Unknown]
  - Nervousness [Unknown]
  - Pharyngeal haemorrhage [Recovered/Resolved]
  - Pharyngitis [Recovered/Resolved]
  - Lymphadenopathy [Recovered/Resolved]
  - Nasal congestion [Unknown]

NARRATIVE: CASE EVENT DATE: 20160921
